FAERS Safety Report 9467319 (Version 2)
Quarter: 2013Q4

REPORT INFORMATION
  Report Type: Spontaneous
  Country: JP (occurrence: JP)
  Receive Date: 20130821
  Receipt Date: 20131128
  Transmission Date: 20140711
  Serious: No
  Sender: FDA-Public Use
  Company Number: JP-AMGEN-JPNSP2013058778

PATIENT
  Age: 55 Year
  Sex: Female
  Weight: 158 kg

DRUGS (11)
  1. RANMARK [Suspect]
     Indication: METASTASES TO BONE
     Dosage: 120 MG, UNK
     Route: 058
     Dates: start: 20120913
  2. RANMARK [Suspect]
     Indication: LUNG NEOPLASM MALIGNANT
  3. GEMZAR [Suspect]
     Indication: LUNG NEOPLASM MALIGNANT
     Dosage: UNKNOWN
     Route: 042
     Dates: start: 20120529
  4. NAVELBINE [Suspect]
     Indication: LUNG NEOPLASM MALIGNANT
     Dosage: UNKNOWN
     Route: 042
     Dates: start: 20120529
  5. KYTRIL [Concomitant]
     Dosage: UNKNOWN
     Route: 065
  6. DECADRON [Concomitant]
     Dosage: UNKNOWN
     Route: 065
  7. BENZALIN                           /00036201/ [Concomitant]
     Indication: INSOMNIA
     Dosage: 0.25 MG, QD
     Route: 048
     Dates: start: 20120623
  8. DEPAS [Concomitant]
     Indication: INSOMNIA
     Dosage: 0.5 MG, BID
     Route: 048
     Dates: start: 20120623
  9. MAGMITT [Concomitant]
     Indication: CONSTIPATION
     Dosage: UNKNOWN
     Route: 048
     Dates: start: 20100607
  10. MAGMITT [Concomitant]
     Route: 048
     Dates: start: 20100607
  11. TAKEPRON [Concomitant]
     Indication: GASTROOESOPHAGEAL REFLUX DISEASE
     Dosage: 15 MG, UNK
     Route: 048
     Dates: start: 20100121

REACTIONS (1)
  - Bone pain [Recovered/Resolved]
